FAERS Safety Report 23553641 (Version 2)
Quarter: 2024Q1

REPORT INFORMATION
  Report Type: Spontaneous
  Country: FR (occurrence: FR)
  Receive Date: 20240222
  Receipt Date: 20240222
  Transmission Date: 20240409
  Serious: Yes (Hospitalization, Other)
  Sender: FDA-Public Use
  Company Number: FR-SERB S.A.S.-2153552

PATIENT
  Age: 76 Year
  Sex: Female

DRUGS (2)
  1. CYANOKIT [Suspect]
     Active Substance: HYDROXOCOBALAMIN
     Route: 042
     Dates: start: 2021, end: 2021
  2. Unspecified vasopressor agents [Concomitant]

REACTIONS (1)
  - Crystal nephropathy [Not Recovered/Not Resolved]
